FAERS Safety Report 4773663-9 (Version None)
Quarter: 2005Q3

REPORT INFORMATION
  Report Type: 
  Country: None (occurrence: None)
  Receive Date: 20050920
  Receipt Date: 20050908
  Transmission Date: 20060218
  Serious: Yes (Hospitalization)
  Sender: FDA-Public Use
  Company Number: US-KINGPHARMUSA00001-K200501185

PATIENT
  Age: 80 Year
  Sex: Female

DRUGS (10)
  1. ALTACE [Suspect]
     Dosage: 1.25 MG, QD
     Route: 048
     Dates: end: 20050419
  2. EBIXA [Suspect]
     Dosage: 10 MG, QD
     Route: 048
     Dates: start: 20040203, end: 20050419
  3. EFFERALGAN [Concomitant]
     Dosage: 3 G, UNK
     Route: 048
  4. KARDEGIC [Concomitant]
     Dosage: 75 MG, UNK
     Route: 048
  5. OMEPRAZOLE [Concomitant]
     Dosage: 20 MG, UNK
     Route: 048
  6. DIGOXIN [Concomitant]
     Dosage: .125 MG, UNK
     Route: 048
  7. DIAFUSOR [Concomitant]
  8. ATARAX [Concomitant]
     Dosage: 25 MG, UNK
     Route: 048
  9. SERETIDE ^ALLEN + HANBURYS LTD^ [Concomitant]
  10. BRONCHOKOD [Concomitant]

REACTIONS (2)
  - HEPATITIS [None]
  - JOINT INJURY [None]
